FAERS Safety Report 23521237 (Version 1)
Quarter: 2024Q1

REPORT INFORMATION
  Report Type: Spontaneous
  Country: CN (occurrence: CN)
  Receive Date: 20240214
  Receipt Date: 20240214
  Transmission Date: 20240410
  Serious: Yes (Hospitalization, Other)
  Sender: FDA-Public Use
  Company Number: CN-ASTELLAS-2024US004533

PATIENT
  Age: 2 Year
  Sex: Male
  Weight: 16.6 kg

DRUGS (8)
  1. TACROLIMUS [Interacting]
     Active Substance: TACROLIMUS
     Indication: Nephrotic syndrome
     Dosage: 0.5 MG IN THE MORNING AND 0.25 MG IN THE EVENING, EVERY 12 HOURS
     Route: 048
     Dates: start: 202204, end: 202204
  2. TACROLIMUS [Interacting]
     Active Substance: TACROLIMUS
     Dosage: 0.5 MG, EVERY 12 HOURS (MORNING AND EVENING)
     Route: 048
     Dates: start: 202204, end: 20220430
  3. TACROLIMUS [Interacting]
     Active Substance: TACROLIMUS
     Dosage: 0.75 MG IN THE MORNING AND 0.5 MG IN THE EVENING, EVERY 12 HOURS
     Route: 048
     Dates: start: 20220501, end: 20220501
  4. TACROLIMUS [Interacting]
     Active Substance: TACROLIMUS
     Dosage: 0.25 MG IN THE MORNING AND 0.5 MG IN THE EVENING, EVERY 12 HOURS
     Route: 048
     Dates: start: 20220501, end: 202205
  5. TACROLIMUS [Interacting]
     Active Substance: TACROLIMUS
     Dosage: 0.5 MG, EVERY 12 HOURS (MORNING/EVENING)
     Route: 048
     Dates: start: 202205, end: 202205
  6. TACROLIMUS [Interacting]
     Active Substance: TACROLIMUS
     Dosage: 1 MG IN THE MORNING AND 0.5 MG IN THE EVENING, EVERY 12 HOURS
     Route: 048
     Dates: start: 202205, end: 202205
  7. TACROLIMUS [Interacting]
     Active Substance: TACROLIMUS
     Dosage: 1 MG, EVERY 12 HOURS (MORNING/EVENING)
     Route: 048
     Dates: start: 202205, end: 202205
  8. TACROLIMUS [Interacting]
     Active Substance: TACROLIMUS
     Dosage: 1 MG IN THE MORNING AND 1.5 MG IN THE EVENING, EVERY 12 HOURS
     Route: 048
     Dates: start: 202205

REACTIONS (6)
  - Hypertensive emergency [Recovered/Resolved]
  - Posterior reversible encephalopathy syndrome [Recovered/Resolved]
  - Status epilepticus [Recovered/Resolved]
  - Drug interaction [Unknown]
  - Off label use [Unknown]
  - Off label use [Unknown]

NARRATIVE: CASE EVENT DATE: 20220401
